FAERS Safety Report 12338788 (Version 1)
Quarter: 2016Q2

REPORT INFORMATION
  Report Type: Report from Study
  Country: BR (occurrence: BR)
  Receive Date: 20160505
  Receipt Date: 20160505
  Transmission Date: 20160815
  Serious: Yes (Death, Hospitalization, Other)
  Sender: FDA-Public Use
  Company Number: PHHY2016BR061554

PATIENT
  Sex: Male

DRUGS (1)
  1. EXELON PATCH [Suspect]
     Active Substance: RIVASTIGMINE
     Indication: DEMENTIA ALZHEIMER^S TYPE
     Route: 062

REACTIONS (7)
  - Pharyngeal disorder [Unknown]
  - Pneumonia [Unknown]
  - Lung infection [Unknown]
  - Death [Fatal]
  - Drug ineffective [Unknown]
  - Multiple organ dysfunction syndrome [Unknown]
  - Pneumonia [Recovered/Resolved]
